FAERS Safety Report 13095136 (Version 1)
Quarter: 2017Q1

REPORT INFORMATION
  Report Type: Other
  Country: RS (occurrence: None)
  Receive Date: 20170107
  Receipt Date: 20170107
  Transmission Date: 20170428
  Serious: Yes (Death)
  Sender: FDA-Public Use
  Company Number: EU-GRANULES INDIA LIMITED-1061699

PATIENT
  Age: 24 Year
  Sex: Female

DRUGS (9)
  1. INSULIN [Concomitant]
     Active Substance: INSULIN NOS
  2. METFORMIN HYDROCHLORIDE. [Suspect]
     Active Substance: METFORMIN HYDROCHLORIDE
     Indication: PRODUCT USED FOR UNKNOWN INDICATION
  3. AMLODIPINE [Suspect]
     Active Substance: AMLODIPINE BESYLATE
  4. CALCIUM GLUCONATE. [Concomitant]
     Active Substance: CALCIUM GLUCONATE
  5. GLUCOSE [Concomitant]
     Active Substance: DEXTROSE
  6. DOPAMINE [Concomitant]
     Active Substance: DOPAMINE\DOPAMINE HYDROCHLORIDE
  7. CALCIUM CHLORIDE. [Concomitant]
     Active Substance: CALCIUM CHLORIDE
  8. GLICLAZIDE [Suspect]
     Active Substance: GLICLAZIDE
  9. GLUCAGONE [Concomitant]

REACTIONS (6)
  - Urine output decreased [Fatal]
  - Cardiopulmonary failure [Fatal]
  - Poisoning deliberate [Fatal]
  - Cardiac arrest [Fatal]
  - Hypotension [Fatal]
  - Sinus tachycardia [Fatal]
